FAERS Safety Report 8805822 (Version 3)
Quarter: 2013Q1

REPORT INFORMATION
  Report Type: Spontaneous
  Country: ES (occurrence: None)
  Receive Date: 20120918
  Receipt Date: 20121128
  Transmission Date: 20140127
  Serious: Yes (Other)
  Sender: FDA-Public Use
  Company Number: ES-CLINIGEN HEALTHCARE LIMITED-002999

PATIENT
  Age: 57 Year
  Sex: Male

DRUGS (4)
  1. FOSCARNET SODIUM [Suspect]
     Indication: CYTOMEGALOVIRUS INFECTION
     Route: 042
     Dates: start: 20071102, end: 20071119
  2. PREDNISONE [Concomitant]
  3. CICLOSPORIN (CICLOSPORIN) [Concomitant]
  4. MYCOPHENOLATE MOFETIL (MYCDOPHENOLATE MOFETIL) [Concomitant]

REACTIONS (3)
  - Encephalopathy [None]
  - Genital ulceration [None]
  - Renal failure [None]
